FAERS Safety Report 15739197 (Version 1)
Quarter: 2018Q4

REPORT INFORMATION
  Report Type: Spontaneous
  Country: US (occurrence: US)
  Receive Date: 20181218
  Receipt Date: 20181218
  Transmission Date: 20190205
  Serious: No
  Sender: FDA-Public Use
  Company Number: None

PATIENT
  Age: 74 Year
  Sex: Male
  Weight: 92.25 kg

DRUGS (13)
  1. OMEPRAZOLE. [Concomitant]
     Active Substance: OMEPRAZOLE
  2. PROBIOTIC COMPLEX [Concomitant]
  3. MULTI-MINERAL [Concomitant]
  4. MULTIVITAMIN [Concomitant]
     Active Substance: VITAMINS
  5. METFORMIN HCL [Concomitant]
     Active Substance: METFORMIN HYDROCHLORIDE
  6. PREDNISONE. [Concomitant]
     Active Substance: PREDNISONE
  7. REMICADE [Suspect]
     Active Substance: INFLIXIMAB
     Indication: SARCOIDOSIS
     Dosage: ?          QUANTITY:1 500 MG;?
     Route: 042
     Dates: start: 20181022, end: 20181022
  8. METOPROLOL. [Concomitant]
     Active Substance: METOPROLOL
  9. SOTALOL. [Concomitant]
     Active Substance: SOTALOL
  10. VITAMIN K [Concomitant]
     Active Substance: PHYTONADIONE
  11. ALLOPURINOL. [Concomitant]
     Active Substance: ALLOPURINOL
  12. WARFARIN SODIUM. [Concomitant]
     Active Substance: WARFARIN SODIUM
  13. SHAKLEE VITA-LEA [Concomitant]

REACTIONS (11)
  - Dysphagia [None]
  - Dysphonia [None]
  - Aphasia [None]
  - Asthenia [None]
  - Abdominal pain [None]
  - Fatigue [None]
  - Diarrhoea [None]
  - Headache [None]
  - Pain [None]
  - Rhinorrhoea [None]
  - Dizziness [None]

NARRATIVE: CASE EVENT DATE: 20181031
